FAERS Safety Report 10594048 (Version 2)
Quarter: 2015Q1

REPORT INFORMATION
  Report Type: Spontaneous
  Country: AR (occurrence: AR)
  Receive Date: 20141119
  Receipt Date: 20150130
  Transmission Date: 20150720
  Serious: Yes (Hospitalization, Other)
  Sender: FDA-Public Use
  Company Number: PHHY2014AR151100

PATIENT
  Sex: Female

DRUGS (1)
  1. TEGRETOL [Suspect]
     Active Substance: CARBAMAZEPINE
     Indication: EPILEPSY
     Dosage: 1200 MG, QD (TEGRETOL OF 300 AND 600 MG)
     Route: 065
     Dates: start: 1979, end: 2010

REACTIONS (10)
  - Skin injury [Recovered/Resolved]
  - Drug eruption [Recovering/Resolving]
  - Skin haemorrhage [Recovered/Resolved]
  - Scratch [Recovered/Resolved]
  - Pruritus [Recovering/Resolving]
  - Skin discolouration [Recovered/Resolved]
  - Blood alkaline phosphatase increased [Recovered/Resolved]
  - Seizure [Recovered/Resolved]
  - Congenital cerebrovascular anomaly [Not Recovered/Not Resolved]
  - Headache [Recovered/Resolved]

NARRATIVE: CASE EVENT DATE: 1981
